FAERS Safety Report 7240987-5 (Version None)
Quarter: 2011Q1

REPORT INFORMATION
  Report Type: 
  Country: None (occurrence: None)
  Receive Date: 20110124
  Receipt Date: 20110114
  Transmission Date: 20110831
  Serious: Yes (Death, Hospitalization, Other)
  Sender: FDA-Public Use
  Company Number: UA-ELI_LILLY_AND_COMPANY-UA201101004098

PATIENT
  Sex: Female

DRUGS (7)
  1. GEMCITABINE HYDROCHLORIDE [Suspect]
     Indication: PANCREATIC CARCINOMA
     Dosage: 1970 MG, UNK
     Dates: start: 20101221
  2. ONDANSETRON [Concomitant]
     Indication: PROPHYLAXIS
     Route: 042
     Dates: start: 20101221, end: 20101221
  3. ONDANSETRON [Concomitant]
     Route: 042
     Dates: start: 20101228, end: 20101228
  4. OTHER PHARMA COMPANY INV DRUG [Suspect]
     Indication: PANCREATIC CARCINOMA
     Dosage: 246 MG, UNK
     Dates: start: 20101221
  5. DICLOFENAC [Concomitant]
     Indication: ABDOMINAL PAIN UPPER
     Route: 030
     Dates: start: 20101001, end: 20110104
  6. ONDANSETRON [Concomitant]
     Route: 042
     Dates: start: 20110104, end: 20110104
  7. ONDANSETRON [Concomitant]
     Dates: start: 20110110

REACTIONS (3)
  - PULMONARY EMBOLISM [None]
  - WEIGHT DECREASED [None]
  - VOMITING [None]
